FAERS Safety Report 4747561-0 (Version None)
Quarter: 2005Q3

REPORT INFORMATION
  Report Type: 
  Country: None (occurrence: None)
  Receive Date: 20050818
  Receipt Date: 20040817
  Transmission Date: 20060218
  Serious: No
  Sender: FDA-Public Use
  Company Number: US-BRISTOL-MYERS SQUIBB COMPANY-12676979

PATIENT

DRUGS (1)
  1. TEQUIN [Suspect]

REACTIONS (2)
  - NAUSEA [None]
  - VOMITING [None]
